FAERS Safety Report 25813064 (Version 2)
Quarter: 2025Q4

REPORT INFORMATION
  Report Type: Other
  Country: US (occurrence: US)
  Receive Date: 20250917
  Receipt Date: 20251230
  Transmission Date: 20260117
  Serious: No
  Sender: TRAVERE THERAPEUTICS
  Company Number: US-TRAVERE-2025TVT01172

PATIENT
  Age: 38 Year
  Sex: Male

DRUGS (1)
  1. FILSPARI [Suspect]
     Active Substance: SPARSENTAN
     Indication: IgA nephropathy
     Route: 048
     Dates: start: 20250702

REACTIONS (2)
  - Abdominal discomfort [Recovered/Resolved]
  - Gastrointestinal disorder [Recovered/Resolved]
